FAERS Safety Report 5212003-8 (Version None)
Quarter: 2007Q1

REPORT INFORMATION
  Report Type: 
  Country: None (occurrence: None)
  Receive Date: 20070118
  Receipt Date: 20070111
  Transmission Date: 20070707
  Serious: Yes (Hospitalization, Other)
  Sender: FDA-Public Use
  Company Number: GB-GLAXOSMITHKLINE-B0454335A

PATIENT
  Sex: Female
  Weight: 52 kg

DRUGS (6)
  1. KIVEXA [Suspect]
     Indication: ACQUIRED IMMUNODEFICIENCY SYNDROME
     Route: 048
     Dates: start: 20051126
  2. CLARITHROMYCIN [Concomitant]
     Indication: PROPHYLAXIS
     Dosage: 500MG PER DAY
     Dates: start: 20050501, end: 20061120
  3. COTRIM D.S. [Concomitant]
     Indication: PROPHYLAXIS
     Dosage: 480MG PER DAY
     Route: 048
     Dates: start: 20050501
  4. FOSAMPRENAVIR [Concomitant]
     Indication: ACQUIRED IMMUNODEFICIENCY SYNDROME
     Dosage: 1400MG TWICE PER DAY
     Route: 048
     Dates: start: 20050920, end: 20060814
  5. MS CONTIN [Concomitant]
     Indication: PAIN
     Dosage: 15MG TWICE PER DAY
     Dates: start: 20050601
  6. NEVIRAPINE [Concomitant]
     Indication: ACQUIRED IMMUNODEFICIENCY SYNDROME
     Dosage: 200MG TWICE PER DAY
     Route: 048
     Dates: start: 20060815

REACTIONS (1)
  - ARTHRITIS [None]
